FAERS Safety Report 7072843-X (Version None)
Quarter: 2010Q4

REPORT INFORMATION
  Report Type: 
  Country: None (occurrence: None)
  Receive Date: 20101029
  Receipt Date: 20100716
  Transmission Date: 20110411
  Serious: No
  Sender: FDA-Public Use
  Company Number: A0851148A

PATIENT
  Age: 62 Year
  Sex: Female

DRUGS (7)
  1. ADVAIR DISKUS 100/50 [Suspect]
     Indication: ASTHMA
     Dosage: 1PUFF TWICE PER DAY
     Route: 055
     Dates: start: 20030101
  2. COMBIVENT [Concomitant]
  3. BLOOD PRESSURE MEDICATION [Concomitant]
  4. DIABETES MEDICATION [Concomitant]
  5. UNSPECIFIED MEDICATION [Concomitant]
     Indication: DEPRESSION
  6. UNSPECIFIED MEDICATION [Concomitant]
     Indication: ANXIETY
  7. UNSPECIFIED MEDICATION [Concomitant]

REACTIONS (3)
  - DYSPNOEA [None]
  - PRODUCT QUALITY ISSUE [None]
  - THERAPEUTIC RESPONSE DECREASED [None]
